FAERS Safety Report 8143865-2 (Version None)
Quarter: 2012Q1

REPORT INFORMATION
  Report Type: 
  Country: None (occurrence: None)
  Receive Date: 20120217
  Receipt Date: 20120213
  Transmission Date: 20120608
  Serious: Yes (Death, Other)
  Sender: FDA-Public Use
  Company Number: US-PFIZER INC-2011265708

PATIENT
  Sex: Female

DRUGS (2)
  1. VFEND [Suspect]
     Indication: PNEUMONIA FUNGAL
  2. VFEND [Suspect]
     Indication: LEUKAEMIA
     Dosage: 200 MG, 2X/DAY
     Route: 048
     Dates: start: 20110829

REACTIONS (4)
  - MALAISE [None]
  - DYSPNOEA [None]
  - PNEUMONIA [None]
  - LEUKAEMIA RECURRENT [None]
